FAERS Safety Report 22331035 (Version 1)
Quarter: 2023Q2

REPORT INFORMATION
  Report Type: Other
  Country: None (occurrence: US)
  Receive Date: 20230517
  Receipt Date: 20230517
  Transmission Date: 20230721
  Serious: Yes (Death)
  Sender: FDA-Public Use
  Company Number: US-P+L Developments of Newyork Corporation-2141573

PATIENT
  Age: 37 Year
  Sex: Male

DRUGS (8)
  1. NICOTINE POLACRILEX [Suspect]
     Active Substance: NICOTINE
     Indication: Product used for unknown indication
     Route: 065
  2. MORPHINE [Suspect]
     Active Substance: MORPHINE
     Route: 065
  3. COCAINE [Suspect]
     Active Substance: COCAINE
     Route: 065
  4. BENZOYLECGONINE [Suspect]
     Active Substance: BENZOYLECGONINE
     Route: 065
  5. COCAETHYLENE [Suspect]
     Active Substance: COCAETHYLENE
     Route: 065
  6. LEVAMISOLE [Suspect]
     Active Substance: LEVAMISOLE
     Route: 065
  7. IBUPROFEN [Suspect]
     Active Substance: IBUPROFEN
     Route: 065
  8. LIDOCAINE [Suspect]
     Active Substance: LIDOCAINE
     Route: 065

REACTIONS (1)
  - Toxicity to various agents [Fatal]
